FAERS Safety Report 5650506-2 (Version None)
Quarter: 2008Q1

REPORT INFORMATION
  Report Type: 
  Country: None (occurrence: None)
  Receive Date: 20080304
  Receipt Date: 20080304
  Transmission Date: 20080703
  Serious: Yes (Death)
  Sender: FDA-Public Use
  Company Number: None

PATIENT
  Age: 51 Year
  Sex: Male
  Weight: 50 kg

DRUGS (7)
  1. PROPRANOLOL [Suspect]
     Indication: CACHEXIA
     Dosage: 10MG BD ORAL
     Route: 048
     Dates: start: 20070402, end: 20070408
  2. ETODOLAC [Suspect]
     Indication: CACHEXIA
     Dosage: 200MG  BD  ORAL
     Route: 048
     Dates: start: 20070402, end: 20070408
  3. CLOGEN (CLOTRIMAZOLE) [Concomitant]
  4. CANDID MOUTHPAINT (CLOTRIMAZOLE) [Concomitant]
  5. WOCKHADIIE MOUTH WASH (POVIDINE-IODINE) [Concomitant]
  6. ESOZ CAP (ESOMEPRAZOLE) [Concomitant]
  7. RECOVIT CAP (MULTIVITAMINS) [Concomitant]

REACTIONS (7)
  - ASPIRATION [None]
  - COUGH [None]
  - DISEASE PROGRESSION [None]
  - EPISTAXIS [None]
  - FALL [None]
  - HAEMATEMESIS [None]
  - PULMONARY HAEMORRHAGE [None]
